FAERS Safety Report 4888929-1 (Version None)
Quarter: 2005Q4

REPORT INFORMATION
  Report Type: 
  Country: None (occurrence: None)
  Receive Date: 20051216
  Receipt Date: 20050718
  Transmission Date: 20060501
  Serious: No
  Sender: FDA-Public Use
  Company Number: USA0507103037

PATIENT
  Age: 89 Year
  Sex: Male

DRUGS (3)
  1. CIALIS [Suspect]
     Indication: ERECTILE DYSFUNCTION
     Dosage: 20 MG/ 1
     Dates: start: 20050715
  2. DILTIAZEM HCL [Concomitant]
  3. DECLOSTATIN [Concomitant]

REACTIONS (1)
  - DRUG INEFFECTIVE [None]
